FAERS Safety Report 4891232-7 (Version None)
Quarter: 2006Q1

REPORT INFORMATION
  Report Type: 
  Country: None (occurrence: None)
  Receive Date: 20060125
  Receipt Date: 20060116
  Transmission Date: 20060701
  Serious: Yes (Hospitalization)
  Sender: FDA-Public Use
  Company Number: 2006GB00024

PATIENT
  Age: 72 Year
  Sex: Female

DRUGS (2)
  1. LIGNOCAINE [Suspect]
     Indication: ANAESTHESIA
     Route: 031
  2. HYALURONIDASE [Suspect]
     Indication: ANAESTHESIA
     Route: 031

REACTIONS (3)
  - EXOPHTHALMOS [None]
  - EYE MOVEMENT DISORDER [None]
  - EYELID OEDEMA [None]
